FAERS Safety Report 17861991 (Version 1)
Quarter: 2020Q2

REPORT INFORMATION
  Report Type: Spontaneous
  Country: CN (occurrence: CN)
  Receive Date: 20200604
  Receipt Date: 20200604
  Transmission Date: 20200714
  Serious: Yes (Other)
  Sender: FDA-Public Use
  Company Number: CN-009507513-2006CHN000953

PATIENT
  Age: 82 Year
  Sex: Female
  Weight: 46 kg

DRUGS (1)
  1. TIENAM [Suspect]
     Active Substance: CILASTATIN SODIUM\IMIPENEM
     Indication: PNEUMONIA
     Dosage: 1 GRAM, Q8H (ALSO REPORTED AS TID), IVGTT
     Route: 041
     Dates: start: 20200520, end: 20200520

REACTIONS (5)
  - Seizure [Recovering/Resolving]
  - Altered state of consciousness [Recovering/Resolving]
  - Lethargy [Unknown]
  - Depression [Recovering/Resolving]
  - Vomiting [Recovering/Resolving]

NARRATIVE: CASE EVENT DATE: 20200520
